FAERS Safety Report 10023151 (Version 1)
Quarter: 2014Q1

REPORT INFORMATION
  Report Type: Spontaneous
  Country: GB (occurrence: GB)
  Receive Date: 20140320
  Receipt Date: 20140320
  Transmission Date: 20141002
  Serious: Yes (Death)
  Sender: FDA-Public Use
  Company Number: GB-ROCHE-1365032

PATIENT
  Age: 62 Year
  Sex: Female
  Weight: 55 kg

DRUGS (9)
  1. ROACTEMRA [Suspect]
     Indication: ARTHRITIS
     Route: 042
     Dates: start: 201112, end: 201402
  2. ADCAL-D3 [Concomitant]
  3. BUTRANS [Concomitant]
  4. CETIRIZINE [Concomitant]
  5. DOMPERIDONE [Concomitant]
  6. METOCLOPRAMIDE [Concomitant]
  7. OMEPRAZOLE [Concomitant]
  8. PARACETAMOL [Concomitant]
  9. THYROXINE [Concomitant]

REACTIONS (1)
  - Cerebral haemorrhage [Fatal]
